FAERS Safety Report 5985255-4 (Version None)
Quarter: 2008Q4

REPORT INFORMATION
  Report Type: 
  Country: None (occurrence: None)
  Receive Date: 20081203
  Receipt Date: 20080515
  Transmission Date: 20090506
  Serious: Yes (Other)
  Sender: FDA-Public Use
  Company Number: 8032655

PATIENT
  Age: 34 Year
  Sex: Female

DRUGS (3)
  1. KEPPRA [Suspect]
     Dosage: 1000 MG /D
     Dates: start: 20070901
  2. CARBATROL, 400 MG [Concomitant]
  3. PRENATAL VITAMINS  /01549301/ [Concomitant]

REACTIONS (3)
  - DRUG EXPOSURE DURING PREGNANCY [None]
  - NAUSEA [None]
  - PREMATURE LABOUR [None]
